FAERS Safety Report 16361478 (Version 4)
Quarter: 2019Q2

REPORT INFORMATION
  Report Type: Spontaneous
  Country: US (occurrence: US)
  Receive Date: 20190528
  Receipt Date: 20190621
  Transmission Date: 20190711
  Serious: Yes (Other)
  Sender: FDA-Public Use
  Company Number: US-PFIZER INC-2019221758

PATIENT
  Age: 56 Year
  Sex: Female

DRUGS (3)
  1. LETROZOLE. [Suspect]
     Active Substance: LETROZOLE
     Indication: BREAST CANCER METASTATIC
     Dosage: UNK
  2. IBRANCE [Suspect]
     Active Substance: PALBOCICLIB
     Indication: BREAST CANCER METASTATIC
     Dosage: UNK
     Dates: start: 201904
  3. IBRANCE [Suspect]
     Active Substance: PALBOCICLIB
     Dosage: 125 MG, UNK

REACTIONS (7)
  - Alopecia [Unknown]
  - Lymphocyte count increased [Unknown]
  - Fatigue [Unknown]
  - Depression [Unknown]
  - Blood count abnormal [Unknown]
  - Infection susceptibility increased [Unknown]
  - White blood cell count decreased [Not Recovered/Not Resolved]
